FAERS Safety Report 19497427 (Version 1)
Quarter: 2021Q3

REPORT INFORMATION
  Report Type: Spontaneous
  Country: US (occurrence: US)
  Receive Date: 20210706
  Receipt Date: 20210706
  Transmission Date: 20211014
  Serious: Yes (Other)
  Sender: FDA-Public Use
  Company Number: US-GYP-000346

PATIENT
  Age: 57 Year

DRUGS (3)
  1. PREDNISONE. [Suspect]
     Active Substance: PREDNISONE
     Indication: IMMUNE-MEDIATED RENAL DISORDER
     Route: 065
     Dates: start: 20201207
  2. PREDNISONE. [Suspect]
     Active Substance: PREDNISONE
     Indication: PANCREATITIS ACUTE
     Route: 065
     Dates: end: 202009
  3. PREDNISONE. [Suspect]
     Active Substance: PREDNISONE
     Indication: IMMUNE-MEDIATED RENAL DISORDER
     Route: 065

REACTIONS (2)
  - Product use in unapproved indication [Unknown]
  - Immune-mediated renal disorder [Recovered/Resolved]
